FAERS Safety Report 15315790 (Version 1)
Quarter: 2018Q3

REPORT INFORMATION
  Report Type: Spontaneous
  Country: US (occurrence: US)
  Receive Date: 20180815
  Receipt Date: 20180815
  Transmission Date: 20181010
  Serious: No
  Sender: FDA-Public Use
  Company Number: None

PATIENT
  Age: 56 Year
  Sex: Male

DRUGS (3)
  1. RIBASPHERE [Suspect]
     Active Substance: RIBAVIRIN
  2. RIBAVIRIN. [Concomitant]
     Active Substance: RIBAVIRIN
  3. ALLOPURINOL. [Concomitant]
     Active Substance: ALLOPURINOL

REACTIONS (2)
  - Gout [None]
  - Diarrhoea [None]

NARRATIVE: CASE EVENT DATE: 20180815
